FAERS Safety Report 8198651-4 (Version None)
Quarter: 2012Q1

REPORT INFORMATION
  Report Type: 
  Country: None (occurrence: None)
  Receive Date: 20120309
  Receipt Date: 20120118
  Transmission Date: 20120608
  Serious: No
  Sender: FDA-Public Use
  Company Number: US-AMGEN-USASP2012003636

PATIENT
  Sex: Female

DRUGS (17)
  1. CITRACAL                           /00751520/ [Concomitant]
  2. EYE DROPS [Concomitant]
  3. KLOR-CON [Concomitant]
  4. NEURPATH B [Concomitant]
  5. SYNTHROID [Concomitant]
  6. LISINOPRIL [Concomitant]
  7. CALCIUM [Concomitant]
  8. DEXILANT [Concomitant]
  9. NITROGLYCERIN [Concomitant]
  10. CENTRUM SILVER                     /01292501/ [Concomitant]
  11. PROLIA [Suspect]
     Indication: OSTEOPOROSIS POSTMENOPAUSAL
     Route: 058
     Dates: start: 20120116
  12. FORTICAL                           /00371903/ [Concomitant]
  13. FUROSEMIDE [Concomitant]
  14. LACTULOSE [Concomitant]
  15. PEPCID [Concomitant]
  16. DILTIAZEM HCL [Concomitant]
  17. DIGOXIN [Concomitant]

REACTIONS (1)
  - MUSCLE SPASMS [None]
